FAERS Safety Report 7655795-0 (Version None)
Quarter: 2011Q3

REPORT INFORMATION
  Report Type: 
  Country: None (occurrence: None)
  Receive Date: 20110729
  Receipt Date: 20110719
  Transmission Date: 20111222
  Serious: Yes (Other)
  Sender: FDA-Public Use
  Company Number: GB-GDP-11411198

PATIENT
  Age: 43 Year
  Sex: Female
  Weight: 74 kg

DRUGS (6)
  1. DOXYCYCLINE [Suspect]
     Dates: start: 20110629, end: 20110707
  2. DOXYCYCLINE [Suspect]
     Dates: start: 20110712
  3. AMOXICILLIN [Concomitant]
  4. ATENOLOL [Concomitant]
  5. BENZYDAMINE HYDROCHLORIDE [Concomitant]
  6. LOSARTAN POTASSIUM [Concomitant]

REACTIONS (1)
  - RASH [None]
